FAERS Safety Report 25251410 (Version 1)
Quarter: 2025Q2

REPORT INFORMATION
  Report Type: Report from Study
  Country: US (occurrence: US)
  Receive Date: 20250429
  Receipt Date: 20250429
  Transmission Date: 20250717
  Serious: Yes (Hospitalization, Other)
  Sender: ABBVIE
  Company Number: US-ABBVIE-6246172

PATIENT
  Sex: Female

DRUGS (1)
  1. SKYRIZI [Suspect]
     Active Substance: RISANKIZUMAB-RZAA
     Indication: Crohn^s disease
     Route: 058
     Dates: start: 2024

REACTIONS (5)
  - Intestinal sepsis [Recovering/Resolving]
  - Surgery [Recovering/Resolving]
  - Small intestinal perforation [Unknown]
  - Abscess intestinal [Recovering/Resolving]
  - Vein rupture [Recovering/Resolving]

NARRATIVE: CASE EVENT DATE: 20240101
